FAERS Safety Report 17560320 (Version 2)
Quarter: 2020Q3

REPORT INFORMATION
  Report Type: Spontaneous
  Country: DK (occurrence: DK)
  Receive Date: 20200319
  Receipt Date: 20200720
  Transmission Date: 20201102
  Serious: Yes (Disabling)
  Sender: FDA-Public Use
  Company Number: NVSC2020DK077745

PATIENT
  Age: 69 Year
  Sex: Female

DRUGS (4)
  1. ACLASTA [Suspect]
     Active Substance: ZOLEDRONIC ACID
     Indication: OSTEOPOROSIS
     Dosage: 5 MG, Q12MO (STYRKE: 5 MG,)
     Route: 042
     Dates: start: 20130904, end: 201905
  2. VITAMIN D [Concomitant]
     Active Substance: VITAMIN D NOS
     Indication: VITAMIN D DEFICIENCY
     Dosage: UNK (DOSIS: EJ ANGIVETSTYRKE: FORSKELLIGE BLAND ANDET 35 OG 19 MIKROGRAM)
     Route: 048
     Dates: start: 2002
  3. MORPHINE [Concomitant]
     Active Substance: MORPHINE
     Indication: PAIN
     Dosage: UNK (DOSIS: VARIERENDESTYRKE: 10, 30 OG 60 MG)
     Route: 048
     Dates: start: 201611
  4. CALCIUM [Concomitant]
     Active Substance: CALCIUM
     Indication: MINERAL SUPPLEMENTATION
     Dosage: 800 MG, QD (STYRKE: 400MG)
     Route: 048
     Dates: start: 2002

REACTIONS (9)
  - Osteonecrosis of jaw [Recovered/Resolved]
  - Oral cavity fistula [Unknown]
  - Tooth loss [Not Recovered/Not Resolved]
  - Jaw disorder [Not Recovered/Not Resolved]
  - Pathological fracture [Unknown]
  - Mastication disorder [Not Recovered/Not Resolved]
  - Pain [Not Recovered/Not Resolved]
  - Headache [Unknown]
  - Osteomyelitis [Recovered/Resolved]

NARRATIVE: CASE EVENT DATE: 2019
